FAERS Safety Report 4342362-X (Version None)
Quarter: 2004Q2

REPORT INFORMATION
  Report Type: 
  Country: None (occurrence: None)
  Receive Date: 20040415
  Receipt Date: 20040402
  Transmission Date: 20050107
  Serious: Yes (Other)
  Sender: FDA-Public Use
  Company Number: HQWYE109225MAR04

PATIENT
  Age: 70 Year
  Sex: Male

DRUGS (5)
  1. AMIODARONE HCL [Suspect]
     Indication: ARRHYTHMIA
     Dosage: 100 MG DOSE;
  2. LOSARTAN (LOSARTAN) [Concomitant]
  3. CO-AMILOFRUSE (AMILORIDE HYDROCHLORIDE/FUROSEMIDE) [Concomitant]
  4. ASPIRIN [Concomitant]
  5. DICLOFENAC SODIUM [Concomitant]

REACTIONS (4)
  - CHEILITIS [None]
  - HAEMORRHAGE [None]
  - HYPERKERATOSIS [None]
  - PHOTOSENSITIVITY REACTION [None]
